FAERS Safety Report 22361409 (Version 1)
Quarter: 2023Q2

REPORT INFORMATION
  Report Type: Spontaneous
  Country: US (occurrence: None)
  Receive Date: 20230523
  Receipt Date: 20230523
  Transmission Date: 20230722
  Serious: No
  Sender: FDA-Public Use
  Company Number: None

PATIENT
  Sex: Female

DRUGS (2)
  1. SIMPONI ARIA [Suspect]
     Active Substance: GOLIMUMAB
     Indication: Rheumatoid arthritis
     Dosage: 161MG  EVERY 8 WEEKS;INTRAVENOUSLY?
     Route: 042
     Dates: start: 202212
  2. SIMPONI ARIA [Suspect]
     Active Substance: GOLIMUMAB
     Indication: Rheumatoid arthritis

REACTIONS (4)
  - Drug ineffective [None]
  - Hepatic function abnormal [None]
  - Hypokinesia [None]
  - Joint swelling [None]
